FAERS Safety Report 18934855 (Version 6)
Quarter: 2022Q3

REPORT INFORMATION
  Report Type: Spontaneous
  Country: JP (occurrence: JP)
  Receive Date: 20210224
  Receipt Date: 20220714
  Transmission Date: 20221027
  Serious: Yes (Other)
  Sender: FDA-Public Use
  Company Number: JP-GLAXOSMITHKLINE-JP2021JPN047997

PATIENT

DRUGS (6)
  1. NUCALA [Suspect]
     Active Substance: MEPOLIZUMAB
     Indication: Asthma
     Dosage: 100 MG
     Route: 058
     Dates: start: 20210114, end: 20210114
  2. TSUMURA BAKUMONDO-TO [Concomitant]
     Indication: Asthma
     Dosage: UNK, TID
     Route: 048
     Dates: start: 20190826
  3. RUPAFIN TABLETS [Concomitant]
     Indication: Dermatitis atopic
     Dosage: UNK, QD
     Route: 048
     Dates: start: 20200731, end: 20210218
  4. CARBOCYSTEINE [Concomitant]
     Active Substance: CARBOCYSTEINE
     Indication: Asthma
     Dosage: UNK, TID
     Route: 048
     Dates: start: 20161017
  5. HERBALS [Concomitant]
     Active Substance: HERBALS
     Indication: Rhinitis allergic
     Dosage: UNK, TID
     Route: 048
     Dates: start: 20200331, end: 20210218
  6. SYMBICORT [Concomitant]
     Active Substance: BUDESONIDE\FORMOTEROL FUMARATE DIHYDRATE
     Indication: Asthma
     Dosage: UNK, BID
     Route: 055
     Dates: start: 20140107

REACTIONS (2)
  - Pemphigoid [Recovering/Resolving]
  - Blister [Recovered/Resolved]

NARRATIVE: CASE EVENT DATE: 20210101
